FAERS Safety Report 8504873 (Version 3)
Quarter: 2013Q3

REPORT INFORMATION
  Report Type: Spontaneous
  Country: US (occurrence: None)
  Receive Date: 20120327
  Receipt Date: 20130724
  Transmission Date: 20140515
  Serious: Yes (Hospitalization)
  Sender: FDA-Public Use
  Company Number: PHEH2009US10686

PATIENT
  Age: 82 Year
  Sex: Female
  Weight: 49.9 kg

DRUGS (15)
  1. GLEEVEC [Suspect]
     Indication: CHRONIC MYELOID LEUKAEMIA
     Dosage: (2 TABLETS BY MOUTH)
     Route: 048
     Dates: start: 200712
  2. ACTONEL [Suspect]
  3. CARDIZEM (DILTIAZEM HYDROCHLORIDE) [Concomitant]
  4. SUCRALFATE (SUCRALFATE) UNKNOWN [Concomitant]
  5. OMEPRAZOLE (OMEPRAZOLE) [Concomitant]
  6. MULTI-VIT (VITAMINS NOS) [Concomitant]
  7. VITAMIN D3 (COLECALCIFEROL) [Concomitant]
  8. IMMUNE HEALTH (ASCORBIC ACID, ECHINACEA PURPUREA, HYDRASTIS CANADENSIS) [Concomitant]
  9. VITAMIN H3 /03427501/ (BIOTIN, POTASSIUM AMINOBENZOATE, PROCAINE HYDROCHLORIDE) [Concomitant]
  10. LUTEIN (XANTOFYL) [Concomitant]
  11. CRANBERRY BERCO (ASCORBIC ACID, VACCINIUM MACROCARPON) [Concomitant]
  12. FOLIC ACID (FOLIC ACID) [Concomitant]
  13. CO Q 10 (UBIDECARENONE) [Concomitant]
  14. OMEGA 3 (FISH OIL) [Concomitant]
  15. CALCIUM (CALCIUM) [Concomitant]

REACTIONS (4)
  - Abdominal pain [None]
  - Poor quality drug administered [None]
  - Drug ineffective [None]
  - Muscle spasms [None]
